FAERS Safety Report 21655034 (Version 5)
Quarter: 2023Q4

REPORT INFORMATION
  Report Type: Report from Study
  Country: JP (occurrence: JP)
  Receive Date: 20221129
  Receipt Date: 20231010
  Transmission Date: 20240109
  Serious: Yes (Other)
  Sender: FDA-Public Use
  Company Number: JP-CELLTRION INC.-2022JP019822

PATIENT

DRUGS (47)
  1. INVESTIGATIONAL BIOSIMILARS [Suspect]
     Active Substance: INVESTIGATIONAL BIOSIMILARS
     Indication: HER2 positive gastric cancer
     Dosage: 550 MILLIGRAM, QD
     Route: 041
     Dates: start: 20220801, end: 20220801
  2. INVESTIGATIONAL BIOSIMILARS [Suspect]
     Active Substance: INVESTIGATIONAL BIOSIMILARS
     Dosage: 396 MILLIGRAM, QD
     Route: 041
     Dates: start: 20220822, end: 20220822
  3. INVESTIGATIONAL BIOSIMILARS [Suspect]
     Active Substance: INVESTIGATIONAL BIOSIMILARS
     Dosage: 396 MILLIGRAM, QD
     Route: 041
     Dates: start: 20220912, end: 20220912
  4. INVESTIGATIONAL BIOSIMILARS [Suspect]
     Active Substance: INVESTIGATIONAL BIOSIMILARS
     Dosage: 396 MILLIGRAM, QD
     Route: 041
     Dates: start: 20221003, end: 20221003
  5. INVESTIGATIONAL BIOSIMILARS [Suspect]
     Active Substance: INVESTIGATIONAL BIOSIMILARS
     Dosage: 396 MILLIGRAM, QD
     Route: 041
     Dates: start: 20221024, end: 20221024
  6. INVESTIGATIONAL BIOSIMILARS [Suspect]
     Active Substance: INVESTIGATIONAL BIOSIMILARS
     Dosage: 396 MILLIGRAM, QD
     Route: 041
     Dates: start: 20221114, end: 20221114
  7. INVESTIGATIONAL BIOSIMILARS [Suspect]
     Active Substance: INVESTIGATIONAL BIOSIMILARS
     Dosage: 396 MILLIGRAM, QD
     Route: 041
     Dates: start: 20221205, end: 20221205
  8. OXALIPLATIN [Suspect]
     Active Substance: OXALIPLATIN
     Indication: HER2 positive gastric cancer
     Dosage: 180 MILLIGRAM, QD
     Route: 041
     Dates: start: 20220801, end: 20220801
  9. OXALIPLATIN [Suspect]
     Active Substance: OXALIPLATIN
     Dosage: 150 MILLIGRAM, QD
     Route: 041
     Dates: start: 20220822, end: 20220822
  10. OXALIPLATIN [Suspect]
     Active Substance: OXALIPLATIN
     Dosage: 150 MILLIGRAM, QD
     Route: 041
     Dates: start: 20220912, end: 20220912
  11. OXALIPLATIN [Suspect]
     Active Substance: OXALIPLATIN
     Dosage: 150 MILLIGRAM, QD
     Route: 041
     Dates: start: 20221003, end: 20221003
  12. OXALIPLATIN [Suspect]
     Active Substance: OXALIPLATIN
     Dosage: 150 MILLIGRAM, QD
     Route: 041
     Dates: start: 20221024, end: 20221024
  13. OXALIPLATIN [Suspect]
     Active Substance: OXALIPLATIN
     Dosage: 150 MILLIGRAM, QD
     Route: 041
     Dates: start: 20221114, end: 20221114
  14. OXALIPLATIN [Suspect]
     Active Substance: OXALIPLATIN
     Dosage: 150 MILLIGRAM, QD
     Route: 041
     Dates: start: 20221205, end: 20221205
  15. GIMERACIL\OTERACIL\TEGAFUR [Suspect]
     Active Substance: GIMERACIL\OTERACIL POTASSIUM\TEGAFUR
     Indication: HER2 positive gastric cancer
     Dosage: 120 MILLIGRAM, QD
     Route: 048
     Dates: start: 20220801, end: 20220815
  16. GIMERACIL\OTERACIL\TEGAFUR [Suspect]
     Active Substance: GIMERACIL\OTERACIL POTASSIUM\TEGAFUR
     Dosage: 100 MILLIGRAM, QD
     Route: 048
     Dates: start: 20220822, end: 20220905
  17. GIMERACIL\OTERACIL\TEGAFUR [Suspect]
     Active Substance: GIMERACIL\OTERACIL POTASSIUM\TEGAFUR
     Dosage: 100 MILLIGRAM, QD
     Route: 048
     Dates: start: 20220912, end: 20220926
  18. GIMERACIL\OTERACIL\TEGAFUR [Suspect]
     Active Substance: GIMERACIL\OTERACIL POTASSIUM\TEGAFUR
     Dosage: 100 MILLIGRAM, QD
     Route: 048
     Dates: start: 20221003, end: 20221017
  19. GIMERACIL\OTERACIL\TEGAFUR [Suspect]
     Active Substance: GIMERACIL\OTERACIL POTASSIUM\TEGAFUR
     Dosage: 100 MILLIGRAM, QD
     Route: 048
     Dates: start: 20221024, end: 20221107
  20. GIMERACIL\OTERACIL\TEGAFUR [Suspect]
     Active Substance: GIMERACIL\OTERACIL POTASSIUM\TEGAFUR
     Dosage: 100 MILLIGRAM, QD
     Route: 048
     Dates: start: 20221114, end: 20221128
  21. GIMERACIL\OTERACIL\TEGAFUR [Suspect]
     Active Substance: GIMERACIL\OTERACIL POTASSIUM\TEGAFUR
     Dosage: 100 MILLIGRAM, QD
     Route: 048
     Dates: start: 20221205, end: 20221219
  22. APREPITANT [Concomitant]
     Active Substance: APREPITANT
     Indication: Prophylaxis of nausea and vomiting
     Dosage: 125 MG, ON DAY1 OF EACH COURSE
     Route: 065
     Dates: end: 20221206
  23. APREPITANT [Concomitant]
     Active Substance: APREPITANT
     Dosage: 80 MG, ON DAY2,3 OF EACH COURSE
     Route: 065
     Dates: end: 20221208
  24. PALONOSETRON [Concomitant]
     Active Substance: PALONOSETRON
     Indication: Prophylaxis
     Dosage: 0.75 MG, ON DAY1 OF EACH COURSE
     Route: 065
     Dates: end: 20221206
  25. PALONOSETRON [Concomitant]
     Active Substance: PALONOSETRON
     Indication: Nausea
  26. PALONOSETRON [Concomitant]
     Active Substance: PALONOSETRON
     Indication: Vomiting
  27. PALONOSETRON [Concomitant]
     Active Substance: PALONOSETRON
     Indication: Prophylaxis of nausea and vomiting
  28. DEXAMETHASONE SODIUM PHOSPHATE [Concomitant]
     Active Substance: DEXAMETHASONE SODIUM PHOSPHATE
     Indication: Prophylaxis of nausea and vomiting
     Dosage: 6.6 MG, ON DAY1 OF EACH COURSE
     Route: 065
     Dates: end: 20221206
  29. DOMPERIDONE [Concomitant]
     Active Substance: DOMPERIDONE
     Indication: Gastritis
     Dosage: 10 MILLIGRAM, QD
     Route: 065
     Dates: end: 20221113
  30. DOMPERIDONE [Concomitant]
     Active Substance: DOMPERIDONE
     Indication: Decreased appetite
  31. DOMPERIDONE [Concomitant]
     Active Substance: DOMPERIDONE
     Indication: Prophylaxis
  32. DOMPERIDONE [Concomitant]
     Active Substance: DOMPERIDONE
     Indication: Nausea
  33. DOMPERIDONE [Concomitant]
     Active Substance: DOMPERIDONE
     Indication: Vomiting
  34. DOMPERIDONE [Concomitant]
     Active Substance: DOMPERIDONE
     Indication: Prophylaxis of nausea and vomiting
  35. DECADRON [Concomitant]
     Active Substance: DEXAMETHASONE
     Indication: Prophylaxis of nausea and vomiting
     Dosage: 0.5 MG ON DAY2,3 OF EACH COURSE
     Route: 065
     Dates: end: 20221208
  36. AMINO ACIDS\CARBOHYDRATES\MINERALS\SOYBEAN OIL\VITAMINS [Concomitant]
     Active Substance: AMINO ACIDS\CARBOHYDRATES\MINERALS\SOYBEAN OIL\VITAMINS
     Indication: Malnutrition
     Dosage: 80 GRAM, QD
     Route: 065
     Dates: end: 20230208
  37. AMINO ACIDS\CARBOHYDRATES\MINERALS\SOYBEAN OIL\VITAMINS [Concomitant]
     Active Substance: AMINO ACIDS\CARBOHYDRATES\MINERALS\SOYBEAN OIL\VITAMINS
     Indication: Decreased appetite
  38. LANSOPRAZOLE [Concomitant]
     Active Substance: LANSOPRAZOLE
     Indication: Gastritis
     Dosage: 15 MG, QD
     Route: 065
     Dates: end: 20230125
  39. MIYA-BM [Concomitant]
     Active Substance: CLOSTRIDIUM BUTYRICUM SPORES STRAIN M-55
     Indication: Malnutrition
     Dosage: 1 GRAM, QD
     Route: 065
     Dates: end: 20230705
  40. IRBESARTAN [Concomitant]
     Active Substance: IRBESARTAN
     Indication: Hypertension
     Dosage: 100 MILLIGRAM, QD
     Route: 065
  41. NIFEDIPINE [Concomitant]
     Active Substance: NIFEDIPINE
     Indication: Hypertension
     Dosage: 40 MG, QD
     Route: 065
     Dates: end: 20221023
  42. SODIUM GUALENATE [Concomitant]
     Active Substance: SODIUM GUALENATE
     Indication: Prophylaxis
     Dosage: UNK
     Dates: end: 20230226
  43. GLYCOSAMINOGLYCANS [Concomitant]
     Active Substance: GLYCOSAMINOGLYCANS
     Indication: Prophylaxis
     Dosage: UNK
     Route: 062
     Dates: end: 20230110
  44. GLYCOSAMINOGLYCANS [Concomitant]
     Active Substance: GLYCOSAMINOGLYCANS
     Indication: Skin disorder
  45. GLYCOSAMINOGLYCANS [Concomitant]
     Active Substance: GLYCOSAMINOGLYCANS
     Indication: Skin disorder prophylaxis
  46. AMLODIPINE BESYLATE\IRBESARTAN [Concomitant]
     Active Substance: AMLODIPINE BESYLATE\IRBESARTAN
     Indication: Hypertension
     Dosage: UNK
     Route: 065
     Dates: start: 20221024, end: 20230313
  47. SODIUM GUALENATE MONOHYDRATE [Concomitant]
     Active Substance: SODIUM GUALENATE MONOHYDRATE
     Indication: Prophylaxis
     Dosage: UNK
     Route: 049
     Dates: end: 20230226

REACTIONS (10)
  - Neuropathy peripheral [Not Recovered/Not Resolved]
  - Hiccups [Recovering/Resolving]
  - Liver disorder [Recovered/Resolved]
  - Platelet count decreased [Recovering/Resolving]
  - Neutrophil count decreased [Recovering/Resolving]
  - Myalgia [Not Recovered/Not Resolved]
  - Constipation [Recovering/Resolving]
  - Arthralgia [Recovered/Resolved]
  - Platelet count decreased [Recovered/Resolved]
  - Overdose [Unknown]

NARRATIVE: CASE EVENT DATE: 20220804
